FAERS Safety Report 4412692-1 (Version None)
Quarter: 2004Q2

REPORT INFORMATION
  Report Type: 
  Country: None (occurrence: None)
  Receive Date: 20040630
  Receipt Date: 20040317
  Transmission Date: 20050107
  Serious: No
  Sender: FDA-Public Use
  Company Number: 04P-163-0253899-00

PATIENT
  Age: 45 Year
  Sex: Female
  Weight: 113.3993 kg

DRUGS (16)
  1. HUMIRA [Suspect]
     Indication: RHEUMATOID ARTHRITIS
     Dosage: 40 MG, 1 IN 1 WK, SUBCUTANEOUS
     Route: 058
     Dates: start: 20030101
  2. METHOTREXATE [Suspect]
     Indication: RHEUMATOID ARTHRITIS
     Dosage: 25 MG, 1 IN 1 WK, INTRAMUSCULAR
     Route: 030
  3. PREDNISONE [Concomitant]
  4. HYDROXYCHLOROQUINE PHOSPHATE [Concomitant]
  5. FOLIC ACID [Concomitant]
  6. FOLINIC ACID [Concomitant]
  7. FENTANYL [Concomitant]
  8. GLIPIZIDE [Concomitant]
  9. MESALAMINE [Concomitant]
  10. BUDESONIDE [Concomitant]
  11. LISINOPRIL [Concomitant]
  12. OMEPRAZOLE [Concomitant]
  13. RANITIDINE HYDROCHLORIDE [Concomitant]
  14. VICODIN [Concomitant]
  15. IRON [Concomitant]
  16. DILTIAZEM HYDROCHLORIDE [Concomitant]

REACTIONS (2)
  - ARTHRITIS [None]
  - HERPES ZOSTER [None]
